FAERS Safety Report 20223991 (Version 1)
Quarter: 2021Q4

REPORT INFORMATION
  Report Type: Report from Study
  Country: IT (occurrence: IT)
  Receive Date: 20211223
  Receipt Date: 20211223
  Transmission Date: 20220303
  Serious: Yes (Other)
  Sender: FDA-Public Use
  Company Number: None

PATIENT
  Age: 59 Year
  Sex: Male

DRUGS (4)
  1. OXALIPLATIN [Suspect]
     Active Substance: OXALIPLATIN
     Indication: Pancreatic carcinoma metastatic
     Dosage: 102 MG; OXALIPLATIN TEVA 5 MG / ML, CONCENTRATE FOR SOLUTION FOR INFUSION
     Dates: start: 20210614
  2. LEVOLEUCOVORIN CALCIUM [Suspect]
     Active Substance: LEVOLEUCOVORIN CALCIUM
     Indication: Pancreatic carcinoma metastatic
     Dosage: 680 MG; CALCIUM LEVOFOLINATE TEVA 175 MG POWDER FOR SOLUTION FOR INFUSION
     Dates: start: 20210614
  3. FLUOROURACIL [Suspect]
     Active Substance: FLUOROURACIL
     Indication: Pancreatic carcinoma metastatic
     Dosage: 4080 MG; FLUOROURACIL TEVA 5 G / 100 ML SOLUTION FOR INFUSION
     Dates: start: 20210614
  4. IRINOTECAN HYDROCHLORIDE [Suspect]
     Active Substance: IRINOTECAN HYDROCHLORIDE
     Indication: Pancreatic carcinoma metastatic
     Dosage: 85 MG
     Dates: start: 20210614

REACTIONS (1)
  - Hypertransaminasaemia [Unknown]

NARRATIVE: CASE EVENT DATE: 20211201
